FAERS Safety Report 24157439 (Version 1)
Quarter: 2024Q3

REPORT INFORMATION
  Report Type: Spontaneous
  Country: IT (occurrence: IT)
  Receive Date: 20240731
  Receipt Date: 20240731
  Transmission Date: 20241016
  Serious: Yes (Hospitalization, Other)
  Sender: GLAXOSMITHKLINE
  Company Number: IT-GLAXOSMITHKLINE-IT2024EME093309

PATIENT

DRUGS (1)
  1. MEPOLIZUMAB [Suspect]
     Active Substance: MEPOLIZUMAB
     Indication: Asthma
     Dosage: UNK
     Dates: start: 2020, end: 202310

REACTIONS (5)
  - Severe asthma with fungal sensitisation [Unknown]
  - Aspergillus infection [Unknown]
  - Asthma [Unknown]
  - Bronchial wall thickening [Unknown]
  - Therapeutic product effect incomplete [Unknown]
